FAERS Safety Report 10927120 (Version 3)
Quarter: 2015Q3

REPORT INFORMATION
  Report Type: Spontaneous
  Country: US (occurrence: US)
  Receive Date: 20150318
  Receipt Date: 20150901
  Transmission Date: 20151125
  Serious: Yes (Other)
  Sender: FDA-Public Use
  Company Number: US-GLAXOSMITHKLINE-US2015034763

PATIENT
  Sex: Female

DRUGS (9)
  1. MAGNESIUM [Concomitant]
     Active Substance: MAGNESIUM
  2. ACYCLOVIR. [Concomitant]
     Active Substance: ACYCLOVIR
  3. MEKINIST [Suspect]
     Active Substance: TRAMETINIB DIMETHYL SULFOXIDE
     Indication: MALIGNANT MELANOMA
     Dosage: 2 MG, UNK
     Dates: start: 201404, end: 201405
  4. FUROSEMIDE. [Concomitant]
     Active Substance: FUROSEMIDE
  5. MEKINIST [Suspect]
     Active Substance: TRAMETINIB DIMETHYL SULFOXIDE
     Indication: NEOPLASM MALIGNANT
     Dosage: UNK, QD
  6. DICYCLOMINE [Concomitant]
     Active Substance: DICYCLOMINE HYDROCHLORIDE
  7. MEKINIST [Suspect]
     Active Substance: TRAMETINIB DIMETHYL SULFOXIDE
     Dosage: 1 MG, UNK
  8. PANTOPRAZOLE [Concomitant]
     Active Substance: PANTOPRAZOLE SODIUM
  9. THALIDOMIDE [Suspect]
     Active Substance: THALIDOMIDE
     Indication: PLASMA CELL MYELOMA
     Dosage: 50 MG, UNK

REACTIONS (10)
  - Hypersensitivity [Unknown]
  - Neuropathy peripheral [Unknown]
  - Anaemia [Unknown]
  - Pancytopenia [Unknown]
  - Malaise [Unknown]
  - Rash [Recovered/Resolved]
  - Fatigue [Unknown]
  - Abdominal pain [Unknown]
  - Pruritus generalised [Recovered/Resolved]
  - Thrombocytopenia [Unknown]
